FAERS Safety Report 4772854-0 (Version None)
Quarter: 2005Q3

REPORT INFORMATION
  Report Type: 
  Country: None (occurrence: None)
  Receive Date: 20050919
  Receipt Date: 20050617
  Transmission Date: 20060218
  Serious: Yes (Hospitalization)
  Sender: FDA-Public Use
  Company Number: US-MERCK-0506USA02800

PATIENT
  Age: 53 Year
  Sex: Male
  Weight: 114 kg

DRUGS (13)
  1. VIOXX [Suspect]
     Indication: FIBROMYALGIA
     Route: 048
     Dates: start: 20000101, end: 20040930
  2. VIOXX [Suspect]
     Route: 048
     Dates: start: 20000101, end: 20040930
  3. VIOXX [Suspect]
     Indication: ARTHRITIS
     Route: 048
     Dates: start: 20000101, end: 20040930
  4. VIOXX [Suspect]
     Route: 048
     Dates: start: 20000101, end: 20040930
  5. AMBIEN [Concomitant]
     Route: 065
     Dates: start: 19920101
  6. ALLEGRA [Concomitant]
     Route: 065
  7. PRILOSEC [Concomitant]
     Route: 065
  8. PROZAC [Concomitant]
     Route: 065
     Dates: start: 19920101
  9. XANAX [Concomitant]
     Route: 065
     Dates: start: 19920101
  10. FOLIC ACID [Concomitant]
     Route: 065
  11. CEFADROXIL [Concomitant]
     Route: 065
  12. CLONAZEPAM [Concomitant]
     Route: 065
     Dates: start: 19920101
  13. ACETAMINOPHEN [Concomitant]
     Route: 065
     Dates: start: 19680101

REACTIONS (11)
  - ARTERIOVENOUS FISTULA [None]
  - CARTILAGE INJURY [None]
  - DEEP VEIN THROMBOSIS [None]
  - GLAUCOMA [None]
  - HYPERTENSION [None]
  - OSTEOARTHRITIS [None]
  - PULMONARY EMBOLISM [None]
  - SEPSIS [None]
  - STRESS [None]
  - THYROID DISORDER [None]
  - TINNITUS [None]
